FAERS Safety Report 8567586-7 (Version None)
Quarter: 2012Q3

REPORT INFORMATION
  Report Type: 
  Country: None (occurrence: None)
  Receive Date: 20120803
  Receipt Date: 20110920
  Transmission Date: 20120928
  Serious: No
  Sender: FDA-Public Use
  Company Number: US-ABBOTT-11P-163-0856415-00

PATIENT
  Age: 50 Year
  Sex: Male

DRUGS (4)
  1. RAMIPRIL [Concomitant]
     Indication: HYPERTENSION
  2. CRESTOR [Concomitant]
     Indication: PRODUCT USED FOR UNKNOWN INDICATION
  3. NIASPAN [Suspect]
     Indication: HIGH DENSITY LIPOPROTEIN DECREASED
  4. NIASPAN [Suspect]
     Indication: CARDIAC DISORDER
     Dates: start: 20110901

REACTIONS (3)
  - PRURITUS [None]
  - FLUSHING [None]
  - PARAESTHESIA [None]
